FAERS Safety Report 10182348 (Version 3)
Quarter: 2014Q2

REPORT INFORMATION
  Report Type: Spontaneous
  Country: FI (occurrence: FI)
  Receive Date: 20140520
  Receipt Date: 20140604
  Transmission Date: 20141212
  Serious: Yes (Hospitalization)
  Sender: FDA-Public Use
  Company Number: FI-PFIZER INC-2014132805

PATIENT
  Age: 66 Year
  Sex: Female

DRUGS (12)
  1. SALAZOPYRIN EN [Suspect]
     Indication: RHEUMATOID ARTHRITIS
     Dosage: 2 G DAILY
     Route: 048
     Dates: start: 2001, end: 20140306
  2. TREXAN [Suspect]
     Indication: RHEUMATOID ARTHRITIS
     Dosage: 20 MG, WEEKLY
     Route: 048
     Dates: end: 2013
  3. TREXAN [Suspect]
     Dosage: 10 MG, WEEKLY
     Route: 048
     Dates: start: 201311, end: 20140306
  4. OXIKLORIN [Suspect]
     Dosage: 300 MG X 1, 5 DAYS/WEEK
     Route: 048
  5. PREDNISOLON [Concomitant]
     Dosage: 2.5 MG, 1X/DAY
  6. FOLIC ACID [Concomitant]
     Dosage: 5 MG, WEEKLY
     Route: 065
  7. CANDEXETIL [Concomitant]
     Dosage: 8 MG, 1X/DAY
     Route: 065
  8. ORLOC [Concomitant]
     Dosage: 2.5 MG, 1X/DAY
     Route: 065
  9. SIMVASTATIN [Concomitant]
     Dosage: 20 MG, 1X/DAY
     Route: 065
  10. TRIPTYL [Concomitant]
     Dosage: 25 MG, 1X/DAY
     Route: 065
  11. KLOTRIPTYL MITE [Concomitant]
     Dosage: UNK
     Route: 065
  12. VOLTAREN RAPID ^NOVARTIS^ [Concomitant]
     Dosage: 50 MG, AS NEEDED
     Route: 065

REACTIONS (2)
  - Dyspnoea [Recovered/Resolved]
  - Lung disorder [Recovered/Resolved]
